FAERS Safety Report 25284986 (Version 3)
Quarter: 2025Q2

REPORT INFORMATION
  Report Type: Spontaneous
  Country: MY (occurrence: MY)
  Receive Date: 20250508
  Receipt Date: 20250523
  Transmission Date: 20250717
  Serious: Yes (Other)
  Sender: SANOFI AVENTIS
  Company Number: MY-SA-2025SA131890

PATIENT
  Age: 27 Year
  Sex: Male

DRUGS (3)
  1. DUPIXENT [Suspect]
     Active Substance: DUPILUMAB
     Indication: Eczema
     Dates: start: 202405, end: 2025
  2. DUPIXENT [Suspect]
     Active Substance: DUPILUMAB
     Route: 058
     Dates: start: 202505
  3. PREDNISOLONE [Concomitant]
     Active Substance: PREDNISOLONE
     Dosage: 10-20MG; QD
     Dates: start: 202412

REACTIONS (6)
  - Cataract [Unknown]
  - Rebound eczema [Unknown]
  - Intentional dose omission [Unknown]
  - Erythema [Unknown]
  - Conjunctivitis [Unknown]
  - Inappropriate schedule of product administration [Unknown]

NARRATIVE: CASE EVENT DATE: 20240701
